FAERS Safety Report 9522578 (Version 1)
Quarter: 2013Q1

REPORT INFORMATION
  Report Type: Spontaneous
  Country: US (occurrence: None)
  Receive Date: 20130305
  Receipt Date: 20130305
  Transmission Date: 20140127
  Serious: Yes (Hospitalization)
  Sender: FDA-Public Use
  Company Number: 163-21880-12011134

PATIENT
  Age: 87 Year
  Sex: Male
  Weight: 79.4 kg

DRUGS (1)
  1. REVLIMID (LENALIDOMIDE) [Suspect]
     Indication: PLASMA CELL MYELOMA
     Dates: start: 20110113

REACTIONS (3)
  - Infection [None]
  - Diarrhoea [None]
  - International normalised ratio increased [None]
